FAERS Safety Report 10767040 (Version 1)
Quarter: 2015Q1

REPORT INFORMATION
  Report Type: Spontaneous
  Country: US (occurrence: US)
  Receive Date: 20150205
  Receipt Date: 20150205
  Transmission Date: 20150721
  Serious: No
  Sender: FDA-Public Use
  Company Number: US-GLAXOSMITHKLINE-A1068121A

PATIENT

DRUGS (3)
  1. BENLYSTA [Suspect]
     Active Substance: BELIMUMAB
     Indication: SYSTEMIC LUPUS ERYTHEMATOSUS
     Dosage: VARIABLE DOSE. 120 MG VIAL.
     Route: 042
     Dates: start: 20130509
  2. UNKNOWN [Concomitant]
     Active Substance: UNSPECIFIED INGREDIENT
  3. BENLYSTA [Suspect]
     Active Substance: BELIMUMAB
     Dates: start: 20130509

REACTIONS (3)
  - Treatment noncompliance [Unknown]
  - Hepatic enzyme increased [Unknown]
  - Pain [Unknown]

NARRATIVE: CASE EVENT DATE: 201306
